FAERS Safety Report 7600582-2 (Version None)
Quarter: 2011Q3

REPORT INFORMATION
  Report Type: 
  Country: None (occurrence: None)
  Receive Date: 20110711
  Receipt Date: 20110707
  Transmission Date: 20111222
  Serious: Yes (Congenital Anomaly)
  Sender: FDA-Public Use
  Company Number: US-PFIZER INC-2011153535

PATIENT

DRUGS (1)
  1. ZOLOFT [Suspect]
     Dosage: UNK
     Route: 064
     Dates: start: 20110101

REACTIONS (2)
  - GENITALIA EXTERNAL AMBIGUOUS [None]
  - MATERNAL EXPOSURE DURING PREGNANCY [None]
